FAERS Safety Report 11058518 (Version 1)
Quarter: 2015Q2

REPORT INFORMATION
  Report Type: Spontaneous
  Country: CN (occurrence: CN)
  Receive Date: 20150423
  Receipt Date: 20150423
  Transmission Date: 20150821
  Serious: Yes (Hospitalization)
  Sender: FDA-Public Use
  Company Number: CN-ROCHE-1567806

PATIENT
  Age: 51 Year
  Sex: Female
  Weight: 64 kg

DRUGS (5)
  1. FLUOROURACIL. [Suspect]
     Active Substance: FLUOROURACIL
     Indication: HEPATIC NEOPLASM
     Dosage: TAKING APART WITH 0.6G AND 0.9G EVERY DAY
     Route: 041
     Dates: start: 20140718, end: 20140719
  2. CAMPTO [Suspect]
     Active Substance: IRINOTECAN
     Indication: HEPATIC NEOPLASM
     Route: 041
     Dates: start: 20140718, end: 20140718
  3. OXALIPLATIN. [Suspect]
     Active Substance: OXALIPLATIN
     Indication: HEPATIC NEOPLASM
     Route: 041
     Dates: start: 20140718, end: 20140718
  4. AVASTIN [Suspect]
     Active Substance: BEVACIZUMAB
     Indication: HEPATIC NEOPLASM
     Route: 041
     Dates: start: 20140718, end: 20140718
  5. CALCIUM FOLINATE [Suspect]
     Active Substance: LEUCOVORIN CALCIUM
     Indication: HEPATIC NEOPLASM
     Route: 041
     Dates: start: 20140718, end: 20140720

REACTIONS (1)
  - Bone marrow failure [Recovering/Resolving]

NARRATIVE: CASE EVENT DATE: 20140731
